FAERS Safety Report 5294451-3 (Version None)
Quarter: 2007Q2

REPORT INFORMATION
  Report Type: 
  Country: None (occurrence: None)
  Receive Date: 20070409
  Receipt Date: 20070409
  Transmission Date: 20071010
  Serious: Yes (Hospitalization)
  Sender: FDA-Public Use
  Company Number: None

PATIENT
  Sex: Male
  Weight: 104.3273 kg

DRUGS (1)
  1. AMBIEN [Suspect]
     Indication: INSOMNIA
     Dosage: 10 MG PRN - LAST 6 MOS. PO
     Route: 048

REACTIONS (11)
  - CONFUSIONAL STATE [None]
  - ECCHYMOSIS [None]
  - FALL [None]
  - FEELING ABNORMAL [None]
  - HAEMORRHAGE [None]
  - ILLUSION [None]
  - JOINT DISLOCATION [None]
  - OEDEMA [None]
  - POSTOPERATIVE WOUND INFECTION [None]
  - SKIN LACERATION [None]
  - SOMNOLENCE [None]
